FAERS Safety Report 20658839 (Version 1)
Quarter: 2022Q1

REPORT INFORMATION
  Report Type: Report from Study
  Country: IT (occurrence: IT)
  Receive Date: 20220331
  Receipt Date: 20220331
  Transmission Date: 20220423
  Serious: Yes (Other)
  Sender: FDA-Public Use
  Company Number: IT-NOVARTISPH-NVSC2022IT071791

PATIENT
  Age: 35 Year
  Sex: Male

DRUGS (1)
  1. CYCLOSPORINE [Suspect]
     Active Substance: CYCLOSPORINE
     Indication: Product used for unknown indication
     Dosage: UNK
     Route: 065

REACTIONS (12)
  - Immune thrombocytopenia [Unknown]
  - Epistaxis [Unknown]
  - Depression [Unknown]
  - Stress [Unknown]
  - Anxiety [Unknown]
  - Depressed mood [Unknown]
  - Decreased interest [Unknown]
  - Disturbance in attention [Unknown]
  - Negative thoughts [Unknown]
  - Feeling abnormal [Unknown]
  - Affective disorder [Unknown]
  - Cognitive disorder [Unknown]
